FAERS Safety Report 13890925 (Version 1)
Quarter: 2017Q3

REPORT INFORMATION
  Report Type: Spontaneous
  Country: US (occurrence: US)
  Receive Date: 20170822
  Receipt Date: 20170822
  Transmission Date: 20171127
  Serious: No
  Sender: FDA-Public Use
  Company Number: US-PFIZER INC-2017359689

PATIENT
  Age: 55 Year
  Sex: Male

DRUGS (1)
  1. CORTEF [Suspect]
     Active Substance: HYDROCORTISONE
     Indication: ADRENAL INSUFFICIENCY
     Dosage: 20 MG, DAILY
     Route: 048

REACTIONS (3)
  - Weight decreased [Unknown]
  - Diarrhoea [Unknown]
  - Fatigue [Unknown]
